FAERS Safety Report 9222859 (Version 1)
Quarter: 2013Q2

REPORT INFORMATION
  Report Type: Report from Study
  Country: CN (occurrence: CN)
  Receive Date: 20130410
  Receipt Date: 20130410
  Transmission Date: 20140414
  Serious: Yes (Death)
  Sender: FDA-Public Use
  Company Number: CN-ROCHE-1208825

PATIENT
  Sex: 0

DRUGS (1)
  1. ALTEPLASE [Suspect]
     Indication: PULMONARY EMBOLISM
     Route: 042

REACTIONS (3)
  - Pulmonary embolism [Fatal]
  - Respiratory failure [Fatal]
  - Cardiac failure congestive [Fatal]
